FAERS Safety Report 7370659-8 (Version None)
Quarter: 2011Q1

REPORT INFORMATION
  Report Type: 
  Country: None (occurrence: None)
  Receive Date: 20110323
  Receipt Date: 20110303
  Transmission Date: 20110831
  Serious: No
  Sender: FDA-Public Use
  Company Number: US-BAYER-2011-022430

PATIENT
  Sex: Female
  Weight: 56 kg

DRUGS (4)
  1. ALEVE [Suspect]
     Indication: ARTHRITIS
     Dosage: 1 DF, TID
     Route: 048
     Dates: start: 20110201, end: 20110303
  2. LOZOL [Concomitant]
     Dosage: 1.25 MG, BID
  3. THYROIDINE [Concomitant]
  4. DIOVAN [Concomitant]

REACTIONS (1)
  - DYSPEPSIA [None]
